FAERS Safety Report 6618098-9 (Version None)
Quarter: 2010Q1

REPORT INFORMATION
  Report Type: 
  Country: None (occurrence: None)
  Receive Date: 20100308
  Receipt Date: 20100301
  Transmission Date: 20100710
  Serious: Yes (Other)
  Sender: FDA-Public Use
  Company Number: US-BAYER-201012632BCC

PATIENT
  Age: 22 Year
  Sex: Male
  Weight: 84 kg

DRUGS (3)
  1. BACTINE [Suspect]
     Indication: ACCIDENTAL EXPOSURE
     Route: 047
     Dates: start: 20100225
  2. PAROXETINE HCL [Concomitant]
     Route: 065
  3. SUBOXONE [Concomitant]
     Route: 065

REACTIONS (4)
  - ERYTHEMA OF EYELID [None]
  - EYE BURNS [None]
  - EYE DISCHARGE [None]
  - EYELID OEDEMA [None]
